FAERS Safety Report 24656392 (Version 1)
Quarter: 2024Q4

REPORT INFORMATION
  Report Type: Spontaneous
  Country: US (occurrence: US)
  Receive Date: 20241124
  Receipt Date: 20241124
  Transmission Date: 20250114
  Serious: No
  Sender: BRISTOL-MYERS SQUIBB COMPANY
  Company Number: US-BRISTOL-MYERS SQUIBB COMPANY-2024-167539

PATIENT
  Age: 75 Year
  Sex: Female
  Weight: 65.32 kg

DRUGS (8)
  1. ATORVASTATIN [Suspect]
     Active Substance: ATORVASTATIN
     Indication: Product used for unknown indication
  2. ACETAMINOPHEN\ASPIRIN\PHENYLPROPANOLAMINE [Suspect]
     Active Substance: ACETAMINOPHEN\ASPIRIN\PHENYLPROPANOLAMINE
     Indication: Product used for unknown indication
  3. ELIQUIS [Interacting]
     Active Substance: APIXABAN
     Indication: Product used for unknown indication
  4. PAXLOVID [Interacting]
     Active Substance: NIRMATRELVIR\RITONAVIR
     Indication: Product used for unknown indication
  5. JARDIANCE [Concomitant]
     Active Substance: EMPAGLIFLOZIN
     Indication: Product used for unknown indication
  6. METOPROLOL [Concomitant]
     Active Substance: METOPROLOL
     Indication: Product used for unknown indication
  7. SPIRONOLACTONE [Concomitant]
     Active Substance: SPIRONOLACTONE
     Indication: Product used for unknown indication
  8. VALSARTAN [Concomitant]
     Active Substance: VALSARTAN
     Indication: Product used for unknown indication

REACTIONS (8)
  - Ear discomfort [Unknown]
  - Epistaxis [Unknown]
  - Dyspnoea [Unknown]
  - Sinusitis [Recovering/Resolving]
  - Dizziness [Unknown]
  - Visual impairment [Unknown]
  - Product label issue [Unknown]
  - Labelled drug-drug interaction issue [Unknown]
